FAERS Safety Report 7391338-7 (Version None)
Quarter: 2011Q1

REPORT INFORMATION
  Report Type: 
  Country: None (occurrence: None)
  Receive Date: 20110324
  Receipt Date: 20110310
  Transmission Date: 20110831
  Serious: Yes (Hospitalization)
  Sender: FDA-Public Use
  Company Number: 2010000563

PATIENT
  Age: 63 Year
  Sex: Male

DRUGS (7)
  1. TRANEXAMIC ACID (TRANEXAMIC ACID) [Concomitant]
  2. ERLOTINIB (ERLOTINIB) (TABLET) (ERLOTINIB) [Suspect]
     Indication: LUNG NEOPLASM MALIGNANT
     Dosage: ORAL
     Route: 048
     Dates: start: 20091008, end: 20110211
  3. MULTIVITAMIN NOS FERROUS SULFATE (FERROUS SULFATE) [Concomitant]
  4. DOXOFYLLINE (DOXOFYLLINE) [Concomitant]
  5. GEMCITABINE [Suspect]
     Indication: LUNG NEOPLASM MALIGNANT
     Dosage: (1.6 GM),INTRAVENOUS
     Route: 042
     Dates: start: 20090924, end: 20100202
  6. CARBOPLATIN [Suspect]
     Indication: LUNG NEOPLASM MALIGNANT
     Dosage: (400 MG),INTRAVENOUS
     Route: 042
     Dates: start: 20090924, end: 20100202
  7. IPRATROPIUM BROMIDE/SALBUTAMOL (SALBUTAMOL W/IPRATROPIUM) [Concomitant]

REACTIONS (13)
  - ASTHENIA [None]
  - ACTIVATED PARTIAL THROMBOPLASTIN TIME PROLONGED [None]
  - BLOOD ALBUMIN DECREASED [None]
  - ANAEMIA [None]
  - PROTEIN TOTAL INCREASED [None]
  - DECREASED APPETITE [None]
  - PETECHIAE [None]
  - ALPHA HAEMOLYTIC STREPTOCOCCAL INFECTION [None]
  - PNEUMONIA [None]
  - THROMBOCYTOPENIA [None]
  - FEBRILE NEUTROPENIA [None]
  - HAEMOPTYSIS [None]
  - BLOOD PRESSURE DECREASED [None]
